FAERS Safety Report 12047122 (Version 1)
Quarter: 2016Q1

REPORT INFORMATION
  Report Type: Spontaneous
  Country: US (occurrence: US)
  Receive Date: 20160208
  Receipt Date: 20160208
  Transmission Date: 20160526
  Serious: No
  Sender: FDA-Public Use
  Company Number: US-PFIZER INC-2016034124

PATIENT
  Age: 57 Year
  Sex: Female

DRUGS (2)
  1. BEXTRA [Suspect]
     Active Substance: VALDECOXIB
     Dosage: UNK
  2. CELEBREX [Suspect]
     Active Substance: CELECOXIB
     Dosage: UNK

REACTIONS (2)
  - Asthma [Unknown]
  - Drug hypersensitivity [Unknown]
